FAERS Safety Report 11143804 (Version 1)
Quarter: 2015Q2

REPORT INFORMATION
  Report Type: Spontaneous
  Country: US (occurrence: None)
  Receive Date: 20150527
  Receipt Date: 20150527
  Transmission Date: 20150821
  Serious: No
  Sender: FDA-Public Use
  Company Number: None

PATIENT
  Age: 64 Year
  Sex: Male

DRUGS (8)
  1. BACLOFEN. [Concomitant]
     Active Substance: BACLOFEN
  2. AMPYRA [Suspect]
     Active Substance: DALFAMPRIDINE
     Indication: MULTIPLE SCLEROSIS
     Route: 048
     Dates: start: 201109
  3. HUMALOG MIX [Concomitant]
     Active Substance: INSULIN LISPRO
  4. TERAZOSIN [Concomitant]
     Active Substance: TERAZOSIN\TERAZOSIN HYDROCHLORIDE
  5. SIMVASTATIN. [Concomitant]
     Active Substance: SIMVASTATIN
  6. AMMONIUM LACTATE 12% TOP CREAM [Concomitant]
  7. UREA 20% TOP CREAM [Concomitant]
  8. AMANTADINE [Concomitant]
     Active Substance: AMANTADINE

REACTIONS (3)
  - Dysuria [None]
  - Laboratory test abnormal [None]
  - Urinary tract infection [None]

NARRATIVE: CASE EVENT DATE: 20150417
